FAERS Safety Report 20095718 (Version 4)
Quarter: 2022Q1

REPORT INFORMATION
  Report Type: Spontaneous
  Country: FR (occurrence: FR)
  Receive Date: 20211122
  Receipt Date: 20220214
  Transmission Date: 20220423
  Serious: Yes (Other)
  Sender: FDA-Public Use
  Company Number: FR-NOVARTISPH-NVSC2021FR256109

PATIENT
  Age: 61 Year
  Sex: Male

DRUGS (6)
  1. CYCLOPHOSPHAMIDE [Suspect]
     Active Substance: CYCLOPHOSPHAMIDE
     Indication: Chemotherapy
     Dosage: 300 MG/M2, QD
     Route: 042
     Dates: start: 20210901, end: 20210903
  2. CYCLOPHOSPHAMIDE [Suspect]
     Active Substance: CYCLOPHOSPHAMIDE
     Indication: Plasma cell myeloma
  3. FLUDARABINE PHOSPHATE [Suspect]
     Active Substance: FLUDARABINE PHOSPHATE
     Indication: Chemotherapy
     Dosage: 30 MG/M2, QD
     Route: 042
     Dates: start: 20210901, end: 20210903
  4. FLUDARABINE PHOSPHATE [Suspect]
     Active Substance: FLUDARABINE PHOSPHATE
     Indication: Plasma cell myeloma
  5. COTRIMOXAZOLE [Concomitant]
     Active Substance: SULFAMETHOXAZOLE\TRIMETHOPRIM
     Indication: Product used for unknown indication
     Dosage: UNK UNK, TIW
     Route: 065
  6. VALACYCLOVIR [Concomitant]
     Active Substance: VALACYCLOVIR HYDROCHLORIDE
     Indication: Product used for unknown indication
     Dosage: 500 MG, QD
     Route: 065

REACTIONS (9)
  - Febrile neutropenia [Recovered/Resolved]
  - Cytokine release syndrome [Unknown]
  - Acute kidney injury [Not Recovered/Not Resolved]
  - Thrombocytopenia [Unknown]
  - Hypogammaglobulinaemia [Unknown]
  - Cytopenia [Unknown]
  - Gastroenteritis [Unknown]
  - Sinusitis [Unknown]
  - Infection [Unknown]

NARRATIVE: CASE EVENT DATE: 20210101
